FAERS Safety Report 12511478 (Version 2)
Quarter: 2016Q3

REPORT INFORMATION
  Report Type: Report from Study
  Country: US (occurrence: US)
  Receive Date: 20160629
  Receipt Date: 20160711
  Transmission Date: 20161109
  Serious: No
  Sender: FDA-Public Use
  Company Number: US-009507513-1606USA013552

PATIENT
  Sex: Female

DRUGS (1)
  1. ISENTRESS [Suspect]
     Active Substance: RALTEGRAVIR POTASSIUM
     Dosage: UNK
     Route: 048

REACTIONS (6)
  - Weight increased [Unknown]
  - Renal pain [Unknown]
  - Fungal infection [Unknown]
  - Food craving [Unknown]
  - Hepatic pain [Unknown]
  - Fatigue [Unknown]
